FAERS Safety Report 10911450 (Version 1)
Quarter: 2015Q1

REPORT INFORMATION
  Report Type: Spontaneous
  Country: ZA (occurrence: ZA)
  Receive Date: 20150313
  Receipt Date: 20150313
  Transmission Date: 20150721
  Serious: Yes (Death)
  Sender: FDA-Public Use
  Company Number: ZA-009507513-1503ZAF003059

PATIENT
  Age: 57 Year

DRUGS (1)
  1. ESMERON [Suspect]
     Active Substance: ROCURONIUM BROMIDE
     Dosage: UNK
     Dates: start: 2005

REACTIONS (3)
  - Endotracheal intubation complication [Unknown]
  - Asthma [Unknown]
  - Death [Fatal]

NARRATIVE: CASE EVENT DATE: 2005
